FAERS Safety Report 5194610-4 (Version None)
Quarter: 2006Q4

REPORT INFORMATION
  Report Type: 
  Country: None (occurrence: None)
  Receive Date: 20061229
  Receipt Date: 20061221
  Transmission Date: 20070319
  Serious: Yes (Life-Threatening, Hospitalization, Disabling)
  Sender: FDA-Public Use
  Company Number: MX-JNJFOC-20061205541

PATIENT
  Age: 57 Year
  Sex: Male

DRUGS (7)
  1. LEVOFLOXACIN [Suspect]
     Indication: NOSOCOMIAL INFECTION
     Route: 048
     Dates: start: 20061130, end: 20061213
  2. CLOPIDOGREL [Concomitant]
     Indication: MYOCARDIAL INFARCTION
     Route: 048
  3. CLARITHROMYCIN [Concomitant]
     Indication: MYOCARDIAL INFARCTION
     Route: 048
  4. ENOXAPARIN SODIUM [Concomitant]
     Indication: CEREBROVASCULAR ACCIDENT
     Route: 058
  5. OMEPRAZOLE [Concomitant]
     Indication: GASTROINTESTINAL DISORDER THERAPY
     Route: 042
  6. FRUSEMIDE [Concomitant]
     Indication: CARDIAC FAILURE
     Route: 042
  7. ATORVASTATIN CALCIUM [Concomitant]
     Indication: MYOCARDIAL ISCHAEMIA
     Route: 048

REACTIONS (1)
  - ISCHAEMIC STROKE [None]
